FAERS Safety Report 5729354-0 (Version None)
Quarter: 2008Q2

REPORT INFORMATION
  Report Type: 
  Country: None (occurrence: None)
  Receive Date: 20080506
  Receipt Date: 20080428
  Transmission Date: 20081010
  Serious: Yes (Other)
  Sender: FDA-Public Use
  Company Number: JP-PFIZER INC-2008036833

PATIENT
  Age: 59 Year
  Sex: Male

DRUGS (1)
  1. XALATAN [Suspect]
     Indication: GLAUCOMA
     Route: 031
     Dates: start: 20080405, end: 20080412

REACTIONS (2)
  - INTRAOCULAR PRESSURE INCREASED [None]
  - KERATITIS HERPETIC [None]
